FAERS Safety Report 7717923-8 (Version None)
Quarter: 2011Q3

REPORT INFORMATION
  Report Type: 
  Country: None (occurrence: None)
  Receive Date: 20110830
  Receipt Date: 20110825
  Transmission Date: 20111222
  Serious: Yes (Other)
  Sender: FDA-Public Use
  Company Number: US-AMGEN-USASP2011040547

PATIENT
  Sex: Female

DRUGS (5)
  1. NPLATE [Suspect]
  2. NPLATE [Suspect]
  3. NPLATE [Suspect]
  4. NPLATE [Suspect]
     Indication: IDIOPATHIC THROMBOCYTOPENIC PURPURA
     Dates: start: 20110211, end: 20110621
  5. NPLATE [Suspect]

REACTIONS (4)
  - TREATMENT NONCOMPLIANCE [None]
  - CONTUSION [None]
  - FATIGUE [None]
  - HEPATITIS C [None]
